FAERS Safety Report 14506437 (Version 1)
Quarter: 2018Q1

REPORT INFORMATION
  Report Type: Spontaneous
  Country: US (occurrence: US)
  Receive Date: 20180208
  Receipt Date: 20180208
  Transmission Date: 20180509
  Serious: Yes (Hospitalization)
  Sender: FDA-Public Use
  Company Number: US-TEVA-2018-US-855792

PATIENT
  Age: 74 Year
  Sex: Female

DRUGS (18)
  1. LIDOCAINE. [Interacting]
     Active Substance: LIDOCAINE
     Indication: ANALGESIC THERAPY
     Route: 050
  2. LORAZEPAM. [Interacting]
     Active Substance: LORAZEPAM
     Indication: HYPERSENSITIVITY
     Dosage: AS NEEDED
     Route: 065
  3. PREGABALIN. [Interacting]
     Active Substance: PREGABALIN
     Indication: PAIN
     Dosage: 75MG NIGHTLY
     Route: 065
  4. LIOTHYRONINE [Interacting]
     Active Substance: LIOTHYRONINE
     Indication: PRODUCT USED FOR UNKNOWN INDICATION
     Dosage: 5 MICROG DAILY
     Route: 065
  5. RISPERIDONE. [Interacting]
     Active Substance: RISPERIDONE
     Indication: PRODUCT USED FOR UNKNOWN INDICATION
     Dosage: 0.5MG EVERY 8 HOURS AS NEEDED
     Route: 065
  6. CLONIDINE. [Interacting]
     Active Substance: CLONIDINE
     Indication: ANALGESIC THERAPY
     Route: 050
  7. GABAPENTIN. [Interacting]
     Active Substance: GABAPENTIN
     Indication: ANALGESIC THERAPY
     Route: 050
  8. DONEPEZIL. [Interacting]
     Active Substance: DONEPEZIL
     Indication: PRODUCT USED FOR UNKNOWN INDICATION
     Dosage: 10MG NIGHTLY
     Route: 065
  9. LORATADINE. [Interacting]
     Active Substance: LORATADINE
     Indication: HYPERSENSITIVITY
     Dosage: 10MG DAILY AS NEEDED
     Route: 065
  10. CONJUGATED ESTROGEN [Interacting]
     Active Substance: ESTROGENS, CONJUGATED
     Indication: PRODUCT USED FOR UNKNOWN INDICATION
     Dosage: 0.625 MG/G TWICE WEEKLY
     Route: 067
  11. KETOPROFEN. [Suspect]
     Active Substance: KETOPROFEN
     Indication: ANALGESIC THERAPY
     Route: 050
  12. OLOPATADINE. [Interacting]
     Active Substance: OLOPATADINE
     Indication: PRODUCT USED FOR UNKNOWN INDICATION
     Dosage: ONE DROP IN EACH EYE TWICE DAILY
     Route: 047
  13. ACETAMINOPHEN W/OXYCODONE [Interacting]
     Active Substance: ACETAMINOPHEN\OXYCODONE HYDROCHLORIDE
     Indication: PAIN
     Dosage: OXYCODONE 5MG/ PARACETAMOL 325MG EVERY 8 HOURS AS NEEDED
     Route: 065
  14. KETAMINE [Interacting]
     Active Substance: KETAMINE
     Indication: ANALGESIC THERAPY
     Route: 050
  15. SERTRALINE [Interacting]
     Active Substance: SERTRALINE HYDROCHLORIDE
     Indication: ANTIDEPRESSANT THERAPY
     Dosage: 100MG DAILY
     Route: 065
  16. NAPROXEN. [Interacting]
     Active Substance: NAPROXEN
     Indication: PAIN
     Dosage: AS NEEDED
     Route: 065
  17. CALCIUM PLUS VITAMIND [Interacting]
     Active Substance: CALCIUM\CHOLECALCIFEROL
     Indication: PRODUCT USED FOR UNKNOWN INDICATION
     Dosage: CALCIUM 600MG/VITAMIN D 400IU TWICE DAILY
     Route: 065
  18. LEVOTHYROXINE SODIUM. [Interacting]
     Active Substance: LEVOTHYROXINE SODIUM
     Indication: PRODUCT USED FOR UNKNOWN INDICATION
     Dosage: 225 MICROG WEEKLY IN DIVIDED DOSES
     Route: 065

REACTIONS (5)
  - Drug interaction [Recovered/Resolved]
  - Delirium [Recovered/Resolved]
  - Homicidal ideation [Recovered/Resolved]
  - Mental status changes [Recovering/Resolving]
  - Suicidal ideation [Recovered/Resolved]
